FAERS Safety Report 10262973 (Version 2)
Quarter: 2014Q2

REPORT INFORMATION
  Report Type: Report from Study
  Country: US (occurrence: US)
  Receive Date: 20140626
  Receipt Date: 20140626
  Transmission Date: 20141212
  Serious: Yes (Death)
  Sender: FDA-Public Use
  Company Number: US-MYLANLABS-2013S1024580

PATIENT
  Age: 59 Year
  Sex: Female

DRUGS (6)
  1. CLOZAPINE TABLETS [Suspect]
     Indication: SCHIZOPHRENIA
     Route: 048
  2. COGENTIN [Concomitant]
  3. PRILOSEC [Concomitant]
  4. DITROPAN [Concomitant]
  5. PERPHENAZINE [Concomitant]
  6. TRAZODONE [Concomitant]

REACTIONS (1)
  - Death [Fatal]
